FAERS Safety Report 19092767 (Version 2)
Quarter: 2021Q2

REPORT INFORMATION
  Report Type: Spontaneous
  Country: AU (occurrence: AU)
  Receive Date: 20210405
  Receipt Date: 20210423
  Transmission Date: 20210717
  Serious: Yes (Other)
  Sender: FDA-Public Use
  Company Number: AU-TASMAN PHARMA, INC.-2021TSM00018

PATIENT
  Sex: Male
  Weight: 111.8 kg

DRUGS (29)
  1. CLOZAPINE. [Suspect]
     Active Substance: CLOZAPINE
     Dosage: 500 MG
     Dates: start: 20190705, end: 20190730
  2. CLOZAPINE. [Suspect]
     Active Substance: CLOZAPINE
     Dosage: 450 MG
     Dates: start: 20191008, end: 20191104
  3. CLOZAPINE. [Suspect]
     Active Substance: CLOZAPINE
     Dosage: 450 MG
     Dates: start: 20191203, end: 20191230
  4. CLOZAPINE. [Suspect]
     Active Substance: CLOZAPINE
     Dosage: 525 MG
     Dates: start: 20181218, end: 20190107
  5. CLOZAPINE. [Suspect]
     Active Substance: CLOZAPINE
     Dosage: 175 MG
     Dates: start: 20171004, end: 20171030
  6. CLOZAPINE. [Suspect]
     Active Substance: CLOZAPINE
     Dosage: 450 MG
     Dates: start: 20200217, end: 20200416
  7. CLOZAPINE. [Suspect]
     Active Substance: CLOZAPINE
     Dosage: 150 MG
     Dates: start: 20190526, end: 20190613
  8. CLOZAPINE. [Suspect]
     Active Substance: CLOZAPINE
     Dosage: 150 MG
     Dates: start: 20170614, end: 20170711
  9. CLOZAPINE. [Suspect]
     Active Substance: CLOZAPINE
     Dosage: 175 MG
     Dates: start: 20170712, end: 20171003
  10. CLOZAPINE. [Suspect]
     Active Substance: CLOZAPINE
     Dosage: 200 MG
     Dates: start: 20171031, end: 20171226
  11. CLOZAPINE. [Suspect]
     Active Substance: CLOZAPINE
     Dosage: 450 MG
     Dates: start: 20200512, end: 20200913
  12. CLOZAPINE. [Suspect]
     Active Substance: CLOZAPINE
     Dosage: 500 MG
     Dates: start: 20190827, end: 20191007
  13. CLOZAPINE. [Suspect]
     Active Substance: CLOZAPINE
     Dosage: 550 MG
     Dates: start: 20190402, end: 20190506
  14. CLOZAPINE. [Suspect]
     Active Substance: CLOZAPINE
     Dosage: 500 MG
     Dates: start: 20190604, end: 20190704
  15. CLOZAPINE. [Suspect]
     Active Substance: CLOZAPINE
     Dosage: 325 MG
     Dates: start: 20180124, end: 20180417
  16. CLOZAPINE. [Suspect]
     Active Substance: CLOZAPINE
     Dosage: 475 MG
     Dates: start: 20180808, end: 20180814
  17. CLOZAPINE. [Suspect]
     Active Substance: CLOZAPINE
     Dosage: 425 MG
     Dates: start: 20200914
  18. CLOZAPINE. [Suspect]
     Active Substance: CLOZAPINE
     Dosage: 450 MG
     Dates: start: 20200129, end: 20200216
  19. CLOZAPINE. [Suspect]
     Active Substance: CLOZAPINE
     Dosage: 475 MG
     Dates: start: 20180815, end: 20181217
  20. CLOZAPINE. [Suspect]
     Active Substance: CLOZAPINE
     Dosage: 500 MG
     Dates: start: 20190731, end: 20190826
  21. CLOZAPINE. [Suspect]
     Active Substance: CLOZAPINE
     Dosage: 450 MG
     Dates: start: 20200417, end: 20200511
  22. CLOZAPINE. [Suspect]
     Active Substance: CLOZAPINE
     Dosage: 375 MG
     Dates: start: 20180418, end: 20180709
  23. CLOZAPINE. [Suspect]
     Active Substance: CLOZAPINE
     Dosage: 575 MG
     Dates: start: 20190108, end: 20190401
  24. CLOZAPINE. [Suspect]
     Active Substance: CLOZAPINE
     Dosage: 450 MG
     Dates: start: 20191105, end: 20191202
  25. CLOZAPINE. [Suspect]
     Active Substance: CLOZAPINE
     Dosage: 200 MG
     Dates: start: 20170518, end: 20190525
  26. CLOZAPINE. [Suspect]
     Active Substance: CLOZAPINE
     Dosage: 500 MG
     Dates: start: 20190507, end: 20190603
  27. CLOZAPINE. [Suspect]
     Active Substance: CLOZAPINE
     Dosage: 475 MG
     Dates: start: 20180710, end: 20180807
  28. CLOZAPINE. [Suspect]
     Active Substance: CLOZAPINE
     Dosage: 200 MG
     Dates: start: 20171227, end: 20180123
  29. CLOZAPINE. [Suspect]
     Active Substance: CLOZAPINE
     Dosage: 450 MG
     Dates: start: 20191231, end: 20200128

REACTIONS (1)
  - Diffuse large B-cell lymphoma [Not Recovered/Not Resolved]
